FAERS Safety Report 26058749 (Version 1)
Quarter: 2025Q4

REPORT INFORMATION
  Report Type: Spontaneous
  Country: US (occurrence: None)
  Receive Date: 20251117
  Receipt Date: 20251117
  Transmission Date: 20260118
  Serious: Yes (Hospitalization)
  Sender: FDA-CTU
  Company Number: None

PATIENT
  Age: 72 Year
  Sex: Male
  Weight: 74.8 kg

DRUGS (2)
  1. CARFILZOMIB [Suspect]
     Active Substance: CARFILZOMIB
     Indication: Plasma cell myeloma
     Dosage: OTHER FREQUENCY : DAY 1,8,15 28-DAY;?
     Route: 042
  2. CARFILZOMIB [Concomitant]
     Active Substance: CARFILZOMIB
     Dates: start: 20240717, end: 20250625

REACTIONS (2)
  - Vasculitis [None]
  - Colitis ischaemic [None]

NARRATIVE: CASE EVENT DATE: 20250214
